FAERS Safety Report 9850880 (Version 6)
Quarter: 2015Q1

REPORT INFORMATION
  Report Type: Spontaneous
  Country: US (occurrence: US)
  Receive Date: 20140128
  Receipt Date: 20150217
  Transmission Date: 20150721
  Serious: Yes (Hospitalization, Other)
  Sender: FDA-Public Use
  Company Number: US-PFIZER INC-2014024599

PATIENT
  Age: 50 Year
  Sex: Male
  Weight: 99 kg

DRUGS (10)
  1. PRILOSEC [Concomitant]
     Active Substance: OMEPRAZOLE MAGNESIUM
     Dosage: UNK
     Dates: start: 2013
  2. ADVIL [Concomitant]
     Active Substance: IBUPROFEN
     Dosage: UNK, AS NEEDED
  3. DILANTIN [Suspect]
     Active Substance: PHENYTOIN
     Indication: BRAIN NEOPLASM
  4. VIMPAT [Concomitant]
     Active Substance: LACOSAMIDE
     Indication: SEIZURE
     Dosage: UNK
     Dates: start: 2013
  5. FLEXERIL [Concomitant]
     Active Substance: CYCLOBENZAPRINE HYDROCHLORIDE
     Dosage: UNK, CYCLIC
     Dates: start: 2012
  6. ONDASETRON [Concomitant]
     Active Substance: ONDANSETRON
     Dosage: UNK
     Dates: start: 2014
  7. ALPRAZOLAM. [Concomitant]
     Active Substance: ALPRAZOLAM
     Dosage: UNK
     Dates: start: 2014
  8. ALBUTEROL. [Concomitant]
     Active Substance: ALBUTEROL
     Dosage: UNK
     Dates: start: 2012
  9. DILANTIN [Suspect]
     Active Substance: PHENYTOIN
     Indication: SEIZURE
     Dosage: 300 MG, 2X/DAY (TAKING OF 3 CAPSULES OF 100MG IN THE MORNING AND 3 CAPSULES OF 100MG IN THE NIGHT)
     Route: 048
     Dates: start: 200712
  10. LISINOPRIL. [Concomitant]
     Active Substance: LISINOPRIL
     Dosage: UNK
     Dates: start: 2014

REACTIONS (4)
  - Neoplasm recurrence [Not Recovered/Not Resolved]
  - Epilepsy [Not Recovered/Not Resolved]
  - Amnesia [Unknown]
  - Drug ineffective [Not Recovered/Not Resolved]

NARRATIVE: CASE EVENT DATE: 200712
